FAERS Safety Report 4350141-2 (Version None)
Quarter: 2004Q2

REPORT INFORMATION
  Report Type: 
  Country: None (occurrence: None)
  Receive Date: 20040429
  Receipt Date: 20040420
  Transmission Date: 20050107
  Serious: Yes (Life-Threatening)
  Sender: FDA-Public Use
  Company Number: US-BRISTOL-MYERS SQUIBB COMPANY-12565552

PATIENT
  Age: 1 Year
  Sex: Male
  Weight: 10 kg

DRUGS (1)
  1. CEFZIL [Suspect]
     Indication: OTITIS MEDIA
     Route: 048
     Dates: start: 20040417, end: 20040419

REACTIONS (2)
  - DYSPNOEA [None]
  - WHEEZING [None]
